FAERS Safety Report 18318767 (Version 1)
Quarter: 2020Q3

REPORT INFORMATION
  Report Type: Spontaneous
  Country: US (occurrence: US)
  Receive Date: 20200928
  Receipt Date: 20200928
  Transmission Date: 20201103
  Serious: No
  Sender: FDA-Public Use
  Company Number: US-SA-2020SA259542

PATIENT

DRUGS (1)
  1. LANTUS SOLOSTAR [Suspect]
     Active Substance: INSULIN GLARGINE
     Indication: TYPE 2 DIABETES MELLITUS
     Dosage: 22 IU IN THE MORNING AND 20 IU IN THE EVENING
     Route: 065
     Dates: start: 2020

REACTIONS (2)
  - Hypoacusis [Recovered/Resolved]
  - Inappropriate schedule of product administration [Unknown]
